FAERS Safety Report 7093953-7 (Version None)
Quarter: 2010Q4

REPORT INFORMATION
  Report Type: 
  Country: None (occurrence: None)
  Receive Date: 20101110
  Receipt Date: 20100716
  Transmission Date: 20110411
  Serious: No
  Sender: FDA-Public Use
  Company Number: US-PFIZER INC-2010070544

PATIENT
  Sex: Female
  Weight: 54.422 kg

DRUGS (1)
  1. NITROSTAT [Suspect]
     Indication: ANGINA PECTORIS
     Dosage: 0.4 MG, AS NEEDED
     Route: 048

REACTIONS (4)
  - ANAEMIA [None]
  - BURNING SENSATION [None]
  - DRUG INEFFECTIVE [None]
  - ORAL DISCOMFORT [None]
